FAERS Safety Report 16634021 (Version 1)
Quarter: 2019Q3

REPORT INFORMATION
  Report Type: Spontaneous
  Country: US (occurrence: US)
  Receive Date: 20190725
  Receipt Date: 20190725
  Transmission Date: 20191004
  Serious: Yes (Hospitalization, Other)
  Sender: FDA-Public Use
  Company Number: US-ASTRAZENECA-2019SF05001

PATIENT
  Age: 60 Year
  Sex: Female
  Weight: 54 kg

DRUGS (4)
  1. SYMBICORT [Suspect]
     Active Substance: BUDESONIDE\FORMOTEROL FUMARATE DIHYDRATE
     Indication: PULMONARY FIBROSIS
     Dosage: 80/4.5 UG, TWO PUFFS TWICE A DAY
     Route: 055
     Dates: start: 2016, end: 2017
  2. SYMBICORT [Suspect]
     Active Substance: BUDESONIDE\FORMOTEROL FUMARATE DIHYDRATE
     Indication: SARCOIDOSIS
     Dosage: 160/4.5 UG, TWO PUFFS TWICE A DAY
     Route: 055
     Dates: start: 2017, end: 201902
  3. SYMBICORT [Suspect]
     Active Substance: BUDESONIDE\FORMOTEROL FUMARATE DIHYDRATE
     Indication: SARCOIDOSIS
     Dosage: 80/4.5 UG, TWO PUFFS TWICE A DAY
     Route: 055
     Dates: start: 2016, end: 2017
  4. SYMBICORT [Suspect]
     Active Substance: BUDESONIDE\FORMOTEROL FUMARATE DIHYDRATE
     Indication: PULMONARY FIBROSIS
     Dosage: 160/4.5 UG, TWO PUFFS TWICE A DAY
     Route: 055
     Dates: start: 2017, end: 201902

REACTIONS (13)
  - Appendix disorder [Unknown]
  - Mitral valve incompetence [Not Recovered/Not Resolved]
  - Pulmonary hypertension [Not Recovered/Not Resolved]
  - Cataract subcapsular [Not Recovered/Not Resolved]
  - Heart valve incompetence [Not Recovered/Not Resolved]
  - Skin cancer [Recovered/Resolved]
  - Product use in unapproved indication [Not Recovered/Not Resolved]
  - Peak expiratory flow rate abnormal [Not Recovered/Not Resolved]
  - Tachycardia [Not Recovered/Not Resolved]
  - Off label use [Not Recovered/Not Resolved]
  - Gallbladder disorder [Unknown]
  - Femoral hernia [Unknown]
  - Oxygen saturation abnormal [Not Recovered/Not Resolved]

NARRATIVE: CASE EVENT DATE: 2016
